FAERS Safety Report 4367104-3 (Version None)
Quarter: 2004Q2

REPORT INFORMATION
  Report Type: 
  Country: None (occurrence: None)
  Receive Date: 20040524
  Receipt Date: 20040506
  Transmission Date: 20050107
  Serious: No
  Sender: FDA-Public Use
  Company Number: DSA_24195_2004

PATIENT
  Age: 50 Year
  Sex: Male
  Weight: 86.1834 kg

DRUGS (9)
  1. TEVETEN [Suspect]
     Indication: BLOOD PRESSURE
     Dosage: 500 MG Q DAY PO
     Route: 048
     Dates: start: 20030623, end: 20030701
  2. IODINE CONTRAST [Suspect]
     Indication: CARDIAC IMAGING PROCEDURE
     Dates: start: 20030626, end: 20030626
  3. CARDIZEM [Concomitant]
  4. ASPIRIN [Concomitant]
  5. BENADRYL [Concomitant]
  6. ALTOCOR [Suspect]
     Dosage: 60 MG BID
     Dates: start: 20030623, end: 20030628
  7. ZANTAC [Concomitant]
  8. PREDNISONE [Concomitant]
  9. PLAVIX [Concomitant]

REACTIONS (2)
  - ANGIONEUROTIC OEDEMA [None]
  - INTENTIONAL OVERDOSE [None]
